FAERS Safety Report 4857148-7 (Version None)
Quarter: 2005Q4

REPORT INFORMATION
  Report Type: 
  Country: None (occurrence: None)
  Receive Date: 20051219
  Receipt Date: 20050708
  Transmission Date: 20060501
  Serious: No
  Sender: FDA-Public Use
  Company Number: US-GLAXOSMITHKLINE-A0565508A

PATIENT
  Age: 66 Year
  Sex: Female

DRUGS (2)
  1. NICODERM CQ [Suspect]
     Dates: start: 20050629
  2. NICORETTE [Suspect]
     Dates: start: 20050501

REACTIONS (4)
  - ABNORMAL DREAMS [None]
  - INTENTIONAL DRUG MISUSE [None]
  - PHARYNGOLARYNGEAL PAIN [None]
  - STOMATITIS [None]
